FAERS Safety Report 5597006-6 (Version None)
Quarter: 2008Q1

REPORT INFORMATION
  Report Type: 
  Country: None (occurrence: None)
  Receive Date: 20080121
  Receipt Date: 20080110
  Transmission Date: 20080703
  Serious: Yes (Hospitalization)
  Sender: FDA-Public Use
  Company Number: FR-WYE-G00871508

PATIENT
  Sex: Male
  Weight: 16.8 kg

DRUGS (9)
  1. ADVIL [Suspect]
     Dosage: ONE DOSE FORM ON 29-OCT-2007 AND ON 31-OCT-2007
     Route: 048
     Dates: start: 20071029, end: 20071031
  2. CARBOCISTEINE [Concomitant]
     Dosage: UNKNOWN
     Route: 048
     Dates: start: 20071012, end: 20071019
  3. TOPLEXIL [Concomitant]
     Dosage: UNKNOWN
     Route: 048
     Dates: start: 20071012
  4. JOSACINE [Concomitant]
     Dosage: 2 DOSE FORM PER DAY
     Route: 048
     Dates: start: 20071012, end: 20071017
  5. DEBRIDAT [Concomitant]
     Dosage: 2 DOSE FORMS PER DAY
     Route: 048
     Dates: start: 20071030, end: 20071101
  6. DOLIPRANE [Concomitant]
     Dosage: UNKNOWN
     Dates: start: 20071030, end: 20071101
  7. RHINOFLUIMUCIL [Concomitant]
     Dosage: UNKNOWN
     Route: 045
     Dates: start: 20071030
  8. CELESTONE [Concomitant]
     Dosage: 180 DROPS PER DAY
     Route: 048
     Dates: start: 20071012, end: 20071014
  9. MOTILIUM [Concomitant]
     Dosage: THREE DOSE FORMS PER DAY
     Route: 048
     Dates: start: 20071030, end: 20071101

REACTIONS (2)
  - GASTRIC ULCER HAEMORRHAGE [None]
  - HAEMORRHAGIC ANAEMIA [None]
